FAERS Safety Report 12987837 (Version 2)
Quarter: 2016Q4

REPORT INFORMATION
  Report Type: Report from Study
  Country: SE (occurrence: SE)
  Receive Date: 20161130
  Receipt Date: 20161212
  Transmission Date: 20170207
  Serious: Yes (Death, Life-Threatening, Hospitalization, Other)
  Sender: FDA-Public Use
  Company Number: PHHO2011SE00477

PATIENT
  Age: 72 Year
  Sex: Male
  Weight: 70 kg

DRUGS (1)
  1. AMN107 [Suspect]
     Active Substance: NILOTINIB
     Indication: CHRONIC MYELOID LEUKAEMIA
     Dosage: 300 MG, BID
     Route: 048
     Dates: start: 20071213

REACTIONS (9)
  - Confusional state [Recovering/Resolving]
  - Vision blurred [Recovering/Resolving]
  - Concomitant disease progression [Recovering/Resolving]
  - Arteriosclerosis [Recovering/Resolving]
  - Atrial fibrillation [Recovering/Resolving]
  - Second primary malignancy [Fatal]
  - Cerebrovascular accident [Not Recovered/Not Resolved]
  - Emotional distress [Recovering/Resolving]
  - Rectal cancer [Fatal]

NARRATIVE: CASE EVENT DATE: 20100520
